FAERS Safety Report 7448972-5 (Version None)
Quarter: 2011Q2

REPORT INFORMATION
  Report Type: 
  Country: None (occurrence: None)
  Receive Date: 20110429
  Receipt Date: 20110420
  Transmission Date: 20111010
  Serious: Yes (Hospitalization)
  Sender: FDA-Public Use
  Company Number: FR-GENENTECH-317408

PATIENT
  Sex: Male

DRUGS (3)
  1. RITUXIMAB [Suspect]
     Dosage: UNK
     Route: 041
  2. RITUXIMAB [Suspect]
     Dosage: 750 MG, UNK
     Route: 041
     Dates: start: 20100831
  3. RITUXIMAB [Suspect]
     Indication: MANTLE CELL LYMPHOMA
     Dosage: UNK
     Route: 041

REACTIONS (1)
  - GASTROINTESTINAL HYPOMOTILITY [None]
